FAERS Safety Report 5143272-0 (Version None)
Quarter: 2006Q4

REPORT INFORMATION
  Report Type: 
  Country: None (occurrence: None)
  Receive Date: 20061103
  Receipt Date: 20061101
  Transmission Date: 20070319
  Serious: Yes (Death)
  Sender: FDA-Public Use
  Company Number: JP-NOVOPROD-258206

PATIENT
  Age: 81 Year
  Sex: Female

DRUGS (2)
  1. NOVOSEVEN [Suspect]
     Indication: TRAUMATIC HAEMORRHAGE
     Dosage: 4.8 MG, UNK
     Route: 042
     Dates: start: 20061031, end: 20061031
  2. FRESH FROZEN PLASMA [Concomitant]
     Dates: start: 20061031, end: 20061031

REACTIONS (1)
  - SHOCK HAEMORRHAGIC [None]
